FAERS Safety Report 10110144 (Version 1)
Quarter: 2014Q2

REPORT INFORMATION
  Report Type: Spontaneous
  Country: US (occurrence: None)
  Receive Date: 20140423
  Receipt Date: 20140423
  Transmission Date: 20141212
  Serious: Yes (Other)
  Sender: FDA-Public Use
  Company Number: C-14-027

PATIENT
  Age: 60 Year
  Sex: Male

DRUGS (1)
  1. OXYCODONE 10MG TABLETS (KVK-TECH) [Suspect]
     Indication: PAIN
     Route: 048
     Dates: start: 20140319, end: 20140321

REACTIONS (4)
  - Drug ineffective [None]
  - Nausea [None]
  - Cough [None]
  - Respiratory disorder [None]
